FAERS Safety Report 9540486 (Version 1)
Quarter: 2013Q3

REPORT INFORMATION
  Report Type: Spontaneous
  Country: FR (occurrence: FR)
  Receive Date: 20130920
  Receipt Date: 20130920
  Transmission Date: 20140515
  Serious: Yes (Hospitalization)
  Sender: FDA-Public Use
  Company Number: FR-GILEAD-2013-0081330

PATIENT
  Age: 74 Year
  Sex: Female

DRUGS (15)
  1. AMBRISENTAN [Suspect]
     Dosage: 10 MG, UNK
     Route: 048
     Dates: start: 20130410, end: 20130430
  2. PREVISCAN /00789001/ [Suspect]
     Indication: PRODUCT USED FOR UNKNOWN INDICATION
     Dosage: 20 MG, UNK
     Route: 048
     Dates: end: 20130430
  3. PREVISCAN /00789001/ [Suspect]
     Dosage: UNK
     Dates: start: 20130512
  4. KARDEGIC [Suspect]
     Indication: PRODUCT USED FOR UNKNOWN INDICATION
     Dosage: 75 MG, UNK
     Route: 048
     Dates: end: 20130430
  5. REVATIO [Concomitant]
     Indication: PULMONARY HYPERTENSION
     Dosage: 20 MG, TID
     Route: 048
  6. OXYGEN [Concomitant]
  7. OMEPRAZOLE [Concomitant]
     Route: 065
  8. DIFFU-K [Concomitant]
     Route: 065
  9. ATORVASTATINE                      /01326102/ [Concomitant]
     Route: 065
  10. LAMALINE                           /00764901/ [Concomitant]
     Route: 065
  11. EFFEXOR [Concomitant]
     Route: 065
  12. DOLIPRANE [Concomitant]
     Route: 065
  13. TRACLEER                           /01587701/ [Concomitant]
     Indication: PULMONARY ARTERIAL HYPERTENSION
     Dosage: 62.5 MG, BID
     Route: 065
     Dates: end: 20130410
  14. TRACLEER                           /01587701/ [Concomitant]
     Dosage: UNK
     Dates: start: 20130603
  15. FUROSEMIDE [Concomitant]
     Dosage: 40 MG, BID

REACTIONS (2)
  - Epistaxis [Recovered/Resolved]
  - Off label use [Unknown]
